FAERS Safety Report 9031466 (Version 1)
Quarter: 2013Q1

REPORT INFORMATION
  Report Type: Report from Study
  Country: US (occurrence: US)
  Receive Date: 20130124
  Receipt Date: 20130124
  Transmission Date: 20140127
  Serious: Yes (Hospitalization)
  Sender: FDA-Public Use
  Company Number: US-ROCHE-1180065

PATIENT
  Age: 49 Year
  Sex: Male

DRUGS (12)
  1. MYCOPHENOLATE MOFETIL [Suspect]
     Indication: RENAL TRANSPLANT
     Route: 048
     Dates: start: 20121119
  2. BELATACEPT [Suspect]
     Indication: RENAL TRANSPLANT
     Route: 042
     Dates: start: 20121024
  3. VIAGRA [Concomitant]
  4. CHOLECALCIFEROL [Concomitant]
  5. THYMOGLOBULIN [Concomitant]
     Route: 065
     Dates: start: 20121023
  6. PEPCID [Concomitant]
  7. BACTRIM FORTE [Concomitant]
  8. NYSTATIN [Concomitant]
  9. LYRICA [Concomitant]
  10. XANAX [Concomitant]
  11. METOPROLOL TARTRATE [Concomitant]
     Route: 065
  12. METOPROLOL TARTRATE [Concomitant]
     Route: 065

REACTIONS (2)
  - Kidney transplant rejection [Unknown]
  - Hydronephrosis [Unknown]
